FAERS Safety Report 23771126 (Version 1)
Quarter: 2024Q2

REPORT INFORMATION
  Report Type: Spontaneous
  Country: AU (occurrence: AU)
  Receive Date: 20240423
  Receipt Date: 20240423
  Transmission Date: 20240716
  Serious: Yes (Other)
  Sender: FDA-Public Use
  Company Number: AU-NOVOPROD-1206477

PATIENT
  Sex: Female

DRUGS (1)
  1. OZEMPIC [Suspect]
     Active Substance: SEMAGLUTIDE
     Indication: Weight control
     Dosage: 1 MG

REACTIONS (5)
  - Appendicitis [Unknown]
  - Cholecystitis [Unknown]
  - Cholelithiasis [Unknown]
  - Condition aggravated [Unknown]
  - Product use in unapproved indication [Unknown]
